FAERS Safety Report 10084678 (Version 1)
Quarter: 2014Q2

REPORT INFORMATION
  Report Type: Spontaneous
  Country: US (occurrence: None)
  Receive Date: 20140414
  Receipt Date: 20140414
  Transmission Date: 20141212
  Serious: Yes (Hospitalization)
  Sender: FDA-Public Use
  Company Number: UTC-046910

PATIENT
  Age: 59 Year
  Sex: Female

DRUGS (3)
  1. TYVASO (0.6 MILLIGRAM/MILLILITERS, AEROSOL FOR INHALATION) (TREPROSTINIL SODIUM) [Suspect]
     Indication: PULMONARY ARTERIAL HYPERTENSION
     Dosage: 18-54 MCG ( 4 IN 1 D)
     Route: 055
     Dates: start: 20130807
  2. ADCIRCA (TADALAFIL) [Concomitant]
  3. TRACLEER (BOSENTAN) [Concomitant]

REACTIONS (2)
  - Chest pain [None]
  - Chest discomfort [None]
